FAERS Safety Report 11614897 (Version 2)
Quarter: 2015Q4

REPORT INFORMATION
  Report Type: Spontaneous
  Country: US (occurrence: US)
  Receive Date: 20151009
  Receipt Date: 20151104
  Transmission Date: 20160304
  Serious: Yes (Hospitalization, Other)
  Sender: FDA-Public Use
  Company Number: US-TEVA-598271USA

PATIENT
  Age: 29 Year
  Sex: Female

DRUGS (1)
  1. COPAXONE [Suspect]
     Active Substance: GLATIRAMER ACETATE
     Indication: MULTIPLE SCLEROSIS
     Route: 065
     Dates: start: 20150902

REACTIONS (7)
  - Hypoaesthesia [Recovering/Resolving]
  - Blindness unilateral [Unknown]
  - Multiple sclerosis relapse [Recovering/Resolving]
  - Seizure [Not Recovered/Not Resolved]
  - Dysarthria [Recovering/Resolving]
  - Asthenia [Not Recovered/Not Resolved]
  - Asthenia [Recovering/Resolving]

NARRATIVE: CASE EVENT DATE: 20150917
